FAERS Safety Report 21893059 (Version 2)
Quarter: 2023Q1

REPORT INFORMATION
  Report Type: Spontaneous
  Country: SI (occurrence: SI)
  Receive Date: 20230120
  Receipt Date: 20230331
  Transmission Date: 20230417
  Serious: Yes (Other)
  Sender: FDA-Public Use
  Company Number: SI-002147023-NVSC2023SI008565

PATIENT
  Sex: Female

DRUGS (2)
  1. AIMOVIG [Suspect]
     Active Substance: ERENUMAB-AOOE
     Indication: Headache
     Dosage: 140 MG
     Route: 065
  2. KEPPRA [Concomitant]
     Active Substance: LEVETIRACETAM
     Indication: Product used for unknown indication
     Dosage: UNK
     Route: 065

REACTIONS (8)
  - Encephalitis autoimmune [Unknown]
  - Body temperature increased [Unknown]
  - Confusional state [Unknown]
  - Speech disorder [Unknown]
  - Aggression [Unknown]
  - Apathy [Unknown]
  - Meningoencephalitis herpetic [Unknown]
  - Off label use [Unknown]
